FAERS Safety Report 23877876 (Version 1)
Quarter: 2024Q2

REPORT INFORMATION
  Report Type: Spontaneous
  Country: US (occurrence: US)
  Receive Date: 20240521
  Receipt Date: 20240521
  Transmission Date: 20240715
  Serious: Yes (Other)
  Sender: FDA-Public Use
  Company Number: US-EPICPHARMA-US-2024EPCLIT00510

PATIENT
  Age: 10 Month
  Sex: Male

DRUGS (1)
  1. CLOBETASOL PROPIONATE [Suspect]
     Active Substance: CLOBETASOL PROPIONATE
     Indication: Pruritus
     Route: 061

REACTIONS (4)
  - Drug abuse [Unknown]
  - Acarodermatitis [Recovered/Resolved]
  - Intentional product misuse [Unknown]
  - Product use issue [Unknown]
